FAERS Safety Report 7339321-1 (Version None)
Quarter: 2011Q1

REPORT INFORMATION
  Report Type: 
  Country: None (occurrence: None)
  Receive Date: 20110308
  Receipt Date: 20110301
  Transmission Date: 20110831
  Serious: Yes (Other)
  Sender: FDA-Public Use
  Company Number: US-PFIZER INC-2011022481

PATIENT
  Sex: Female
  Weight: 35 kg

DRUGS (12)
  1. DIAZEPAM [Concomitant]
     Dosage: 10 MG AM,PM 5 MG AFTERNOON
  2. CELEXA [Concomitant]
     Indication: DEPRESSION
     Dosage: UNK
  3. ALBUTEROL [Concomitant]
     Indication: DYSPNOEA
  4. FLOVENT [Concomitant]
     Dosage: UNK
  5. CHANTIX [Suspect]
     Indication: SMOKING CESSATION THERAPY
     Dosage: 0.5 MG, 2X/DAY
     Route: 048
     Dates: start: 20100804, end: 20110103
  6. HALDOL [Concomitant]
     Indication: SCHIZOAFFECTIVE DISORDER
     Dosage: 5 MG, 2X/DAY
  7. PREDNISONE [Concomitant]
     Dosage: 20 MG
  8. SPIRIVA [Concomitant]
     Dosage: UNK
  9. NORTRIPTYLINE [Concomitant]
     Indication: DEPRESSION
     Dosage: 100 MG, 2X/DAY
  10. ALBUTEROL [Concomitant]
     Indication: WHEEZING
     Dosage: AS NEEDED
  11. FLEXERIL [Concomitant]
     Dosage: UNK
  12. AMBIEN [Concomitant]
     Dosage: UNK

REACTIONS (8)
  - MANIA [None]
  - HOMICIDAL IDEATION [None]
  - ANGER [None]
  - SCREAMING [None]
  - DEPRESSION [None]
  - TOBACCO WITHDRAWAL SYMPTOMS [None]
  - EMOTIONAL DISORDER [None]
  - SUICIDAL IDEATION [None]
